FAERS Safety Report 6914410-1 (Version None)
Quarter: 2010Q3

REPORT INFORMATION
  Report Type: 
  Country: None (occurrence: None)
  Receive Date: 20100809
  Receipt Date: 20100730
  Transmission Date: 20110219
  Serious: Yes (Other)
  Sender: FDA-Public Use
  Company Number: FR-SANOFI-AVENTIS-2010SA045166

PATIENT
  Age: 48 Year
  Sex: Female

DRUGS (9)
  1. KARDEGIC [Suspect]
     Route: 048
     Dates: end: 20100601
  2. PLAVIX [Suspect]
     Route: 048
     Dates: end: 20100601
  3. IKOREL [Suspect]
     Dates: end: 20100601
  4. ISOMERIDE [Suspect]
     Route: 048
  5. MEDIATOR [Suspect]
     Route: 048
     Dates: start: 20030101, end: 20090101
  6. ISOPTIN [Suspect]
     Route: 048
     Dates: end: 20100601
  7. COVERSYL /FRA/ [Suspect]
     Route: 048
     Dates: end: 20100601
  8. CRESTOR [Suspect]
     Route: 048
  9. TARDYFERON /GFR/ [Concomitant]
     Route: 048

REACTIONS (5)
  - CHEST PAIN [None]
  - DYSPNOEA [None]
  - MITRAL VALVE DISEASE [None]
  - PULMONARY VALVE DISEASE [None]
  - TRICUSPID VALVE DISEASE [None]
